FAERS Safety Report 5332646-0 (Version None)
Quarter: 2007Q2

REPORT INFORMATION
  Report Type: 
  Country: None (occurrence: None)
  Receive Date: 20070523
  Receipt Date: 20070511
  Transmission Date: 20071010
  Serious: Yes (Hospitalization, Other)
  Sender: FDA-Public Use
  Company Number: AU-PFIZER INC-2007039162

PATIENT
  Sex: Female

DRUGS (2)
  1. SALAZOPYRIN EN [Suspect]
     Indication: RHEUMATOID ARTHRITIS
     Dosage: TEXT:3 DAILY
  2. METHOTREXATE [Suspect]
     Indication: RHEUMATOID ARTHRITIS

REACTIONS (11)
  - CHILLS [None]
  - COUGH [None]
  - HEPATIC ENZYME INCREASED [None]
  - HYPERSENSITIVITY [None]
  - HYPOAESTHESIA [None]
  - LIVER DISORDER [None]
  - PARALYSIS [None]
  - PERIPHERAL COLDNESS [None]
  - PYREXIA [None]
  - SKIN HYPERPIGMENTATION [None]
  - YELLOW SKIN [None]
